FAERS Safety Report 9455557 (Version 1)
Quarter: 2013Q3

REPORT INFORMATION
  Report Type: Spontaneous
  Country: US (occurrence: US)
  Receive Date: 20130813
  Receipt Date: 20130813
  Transmission Date: 20140515
  Serious: No
  Sender: FDA-Public Use
  Company Number: US-PFIZER INC-2013230723

PATIENT
  Age: 60 Year
  Sex: Female
  Weight: 84 kg

DRUGS (4)
  1. CHANTIX [Suspect]
     Indication: SMOKING CESSATION THERAPY
     Dosage: UNK
  2. URSODIOL [Suspect]
     Indication: PANCREATITIS
     Dosage: 500 MG, TWICE A DAY
  3. CREON [Suspect]
     Indication: PANCREATITIS
     Dosage: 2400 IU CAPSULE, THREE TIMES A DAY
     Route: 048
  4. JANUMET [Suspect]
     Indication: DIABETES MELLITUS
     Dosage: 50/1000 MG, TWICE A DAY
     Route: 048

REACTIONS (2)
  - Flatulence [Unknown]
  - Abnormal dreams [Recovered/Resolved]
